FAERS Safety Report 7736131-8 (Version None)
Quarter: 2011Q3

REPORT INFORMATION
  Report Type: 
  Country: None (occurrence: None)
  Receive Date: 20110908
  Receipt Date: 20110829
  Transmission Date: 20111222
  Serious: Yes (Hospitalization)
  Sender: FDA-Public Use
  Company Number: DE-JNJFOC-20110810174

PATIENT
  Sex: Male
  Weight: 77.5 kg

DRUGS (2)
  1. VALPROATE SODIUM [Concomitant]
     Indication: THERAPEUTIC RESPONSE DECREASED
     Route: 048
     Dates: start: 20110501
  2. PALIPERIDONE [Suspect]
     Indication: SCHIZOPHRENIA, PARANOID TYPE
     Route: 030
     Dates: start: 20110622, end: 20110808

REACTIONS (3)
  - HOSPITALISATION [None]
  - DRUG LEVEL DECREASED [None]
  - DRUG INEFFECTIVE [None]
